FAERS Safety Report 8890020 (Version 2)
Quarter: 2012Q4

REPORT INFORMATION
  Report Type: 
  Country: US (occurrence: US)
  Receive Date: 20121107
  Receipt Date: 20121220
  Transmission Date: 20130627
  Serious: No
  Sender: FDA-Public Use
  Company Number: US-PFIZER INC-2012276607

PATIENT
  Age: 87 Year
  Sex: Female
  Weight: 81.63 kg

DRUGS (4)
  1. LIPITOR [Suspect]
     Indication: HIGH CHOLESTEROL
     Dosage: UNK
  2. SPIRIVA [Suspect]
     Indication: CHRONIC OBSTRUCTIVE PULMONARY DISEASE
     Dosage: 18 ug, 1x/day
  3. IBUPROFEN [Concomitant]
     Dosage: UNK
  4. ALBUTEROL [Concomitant]
     Dosage: UNK

REACTIONS (2)
  - Dyspnoea [Unknown]
  - Cough [Unknown]
